FAERS Safety Report 10003707 (Version 2)
Quarter: 2014Q1

REPORT INFORMATION
  Report Type: Report from Study
  Country: US (occurrence: US)
  Receive Date: 20140312
  Receipt Date: 20140312
  Transmission Date: 20141002
  Serious: Yes (Hospitalization)
  Sender: FDA-Public Use
  Company Number: US-US-EMD SERONO, INC.-7269785

PATIENT
  Age: 41 Year
  Sex: Female

DRUGS (6)
  1. REBIF [Suspect]
     Indication: MULTIPLE SCLEROSIS
     Route: 058
     Dates: start: 20140108
  2. REBIF [Suspect]
     Route: 058
     Dates: end: 20140221
  3. WELLBUTRIN [Concomitant]
     Indication: BIPOLAR DISORDER
  4. LITHIUM [Concomitant]
     Indication: BIPOLAR DISORDER
     Dates: start: 1989
  5. ATIVAN [Concomitant]
     Indication: BIPOLAR DISORDER
  6. NEURONTIN [Concomitant]
     Indication: PRODUCT USED FOR UNKNOWN INDICATION

REACTIONS (23)
  - Suicide attempt [Recovering/Resolving]
  - Antipsychotic drug level below therapeutic [Not Recovered/Not Resolved]
  - Mental disorder [Unknown]
  - Antipsychotic drug level above therapeutic [Not Recovered/Not Resolved]
  - Adverse reaction [Unknown]
  - Suicidal ideation [Recovering/Resolving]
  - Dizziness [Not Recovered/Not Resolved]
  - Aphasia [Not Recovered/Not Resolved]
  - Syncope [Unknown]
  - Memory impairment [Unknown]
  - Bronchitis [Recovering/Resolving]
  - Irritability [Not Recovered/Not Resolved]
  - Feeling abnormal [Not Recovered/Not Resolved]
  - Amnesia [Unknown]
  - Conversion disorder [Unknown]
  - Visual impairment [Unknown]
  - Vision blurred [Unknown]
  - Headache [Not Recovered/Not Resolved]
  - Pyrexia [Not Recovered/Not Resolved]
  - Pain [Not Recovered/Not Resolved]
  - Injection site reaction [Not Recovered/Not Resolved]
  - Injection site haemorrhage [Unknown]
  - Fatigue [Unknown]
